FAERS Safety Report 18050686 (Version 1)
Quarter: 2020Q3

REPORT INFORMATION
  Report Type: Spontaneous
  Country: GB (occurrence: GB)
  Receive Date: 20200721
  Receipt Date: 20200721
  Transmission Date: 20201103
  Serious: Yes (Other)
  Sender: FDA-Public Use
  Company Number: GB-ASCEND THERAPEUTICS US, LLC-2087570

PATIENT
  Sex: Female

DRUGS (3)
  1. ESTROGEL [Suspect]
     Active Substance: ESTRADIOL
     Indication: PRODUCT USED FOR UNKNOWN INDICATION
  2. OESTRODOSE (ESTRADIOL), UNKNOWN [Suspect]
     Active Substance: ESTRADIOL
  3. ESTROGEL [Suspect]
     Active Substance: ESTRADIOL

REACTIONS (5)
  - Depression [Unknown]
  - Therapeutic product effect decreased [None]
  - Suicidal ideation [Unknown]
  - Product substitution issue [None]
  - Fatigue [Unknown]
